FAERS Safety Report 4609514-2 (Version None)
Quarter: 2005Q1

REPORT INFORMATION
  Report Type: 
  Country: None (occurrence: None)
  Receive Date: 20050314
  Receipt Date: 20050314
  Transmission Date: 20050727
  Serious: Yes (Death)
  Sender: FDA-Public Use
  Company Number: None

PATIENT
  Age: 75 Year
  Sex: Male
  Weight: 60.8 kg

DRUGS (1)
  1. CLAFORAN [Suspect]
     Indication: PYREXIA
     Dosage: 1 GM TID INTRAVENOU
     Route: 042
     Dates: start: 20041209, end: 20041210

REACTIONS (15)
  - ACUTE MYOCARDIAL INFARCTION [None]
  - AGITATION [None]
  - COMPRESSION FRACTURE [None]
  - FALL [None]
  - GENERAL PHYSICAL HEALTH DETERIORATION [None]
  - HAEMATOCHEZIA [None]
  - HAEMOGLOBIN DECREASED [None]
  - HAEMORRHOIDS [None]
  - IMMUNE SYSTEM DISORDER [None]
  - PLATELET COUNT DECREASED [None]
  - PULMONARY EMBOLISM [None]
  - PYREXIA [None]
  - RECTAL HAEMORRHAGE [None]
  - THROMBOCYTOPENIA [None]
  - THROMBOSIS [None]
